FAERS Safety Report 10064346 (Version 2)
Quarter: 2014Q2

REPORT INFORMATION
  Report Type: Spontaneous
  Country: DE (occurrence: DE)
  Receive Date: 20140408
  Receipt Date: 20140428
  Transmission Date: 20141212
  Serious: Yes (Disabling, Other)
  Sender: FDA-Public Use
  Company Number: GXKR2014DE001505

PATIENT
  Age: 17 Year
  Sex: Male
  Weight: 100 kg

DRUGS (2)
  1. TRIAMHEXAL [Suspect]
     Indication: PERIARTHRITIS
     Dosage: 1 DF, ONCE/SINGLE
     Route: 065
     Dates: start: 20140214, end: 20140214
  2. MEPIHEXAL [Concomitant]
     Indication: PERIARTHRITIS
     Dosage: 9 ML, ONCE/SINGLE
     Route: 065
     Dates: start: 20140214, end: 20140214

REACTIONS (6)
  - Peripheral nerve injury [Unknown]
  - Hypoaesthesia [Not Recovered/Not Resolved]
  - Muscular weakness [Not Recovered/Not Resolved]
  - Winged scapula [Not Recovered/Not Resolved]
  - Pain in extremity [Recovering/Resolving]
  - Musculoskeletal pain [Not Recovered/Not Resolved]
